FAERS Safety Report 9087614 (Version 5)
Quarter: 2013Q2

REPORT INFORMATION
  Report Type: Report from Study
  Country: FR (occurrence: FR)
  Receive Date: 20130201
  Receipt Date: 20130418
  Transmission Date: 20140414
  Serious: Yes (Hospitalization)
  Sender: FDA-Public Use
  Company Number: FR-ROCHE-1182696

PATIENT
  Age: 48 Year
  Sex: Male
  Weight: 74 kg

DRUGS (29)
  1. VEMURAFENIB [Suspect]
     Indication: MALIGNANT MELANOMA
     Dosage: DATE OF LAST DOSE PRIOR TO SAE 18/JAN/2013
     Route: 048
     Dates: start: 20121030, end: 20130224
  2. SEROPLEX [Concomitant]
     Route: 048
     Dates: start: 2009, end: 20121029
  3. SEROPLEX [Concomitant]
     Route: 065
     Dates: start: 20121030, end: 20121104
  4. SEROPLEX [Concomitant]
     Route: 048
     Dates: start: 20121106
  5. PROZAC [Concomitant]
     Route: 048
     Dates: start: 20121029
  6. VIAGRA [Concomitant]
     Indication: ERECTILE DYSFUNCTION
     Route: 048
     Dates: start: 2009, end: 20121029
  7. CIALIS [Concomitant]
     Indication: ERECTILE DYSFUNCTION
     Route: 048
     Dates: start: 2009, end: 20121127
  8. CIALIS [Concomitant]
     Route: 048
     Dates: start: 20121128
  9. YOHIMBINE [Concomitant]
     Indication: ERECTILE DYSFUNCTION
     Route: 065
     Dates: start: 2009, end: 20121029
  10. PARACETAMOL [Concomitant]
     Route: 048
     Dates: start: 20121016
  11. DEXERYL (FRANCE) [Concomitant]
     Dosage: 1 APPLICATION
     Route: 061
     Dates: start: 20121112
  12. LYRICA [Concomitant]
     Route: 048
     Dates: start: 20121128
  13. KEPPRA [Concomitant]
     Route: 048
     Dates: start: 20121210, end: 20121212
  14. KEPPRA [Concomitant]
     Route: 048
     Dates: start: 20121213
  15. CORTANCYL [Concomitant]
     Indication: PROPHYLAXIS
     Route: 048
     Dates: start: 20121205, end: 20121207
  16. CORTANCYL [Concomitant]
     Route: 048
     Dates: start: 20121208, end: 20121224
  17. CORTANCYL [Concomitant]
     Route: 065
     Dates: start: 20121225, end: 20130113
  18. CORTANCYL [Concomitant]
     Route: 065
     Dates: start: 20130114, end: 20130123
  19. CORTANCYL [Concomitant]
     Route: 048
     Dates: start: 20130124, end: 20130131
  20. CORTANCYL [Concomitant]
     Route: 048
     Dates: start: 20130201
  21. MOPRAL (FRANCE) [Concomitant]
     Indication: PROPHYLAXIS
     Route: 048
     Dates: start: 20121205
  22. METEOSPASMYL [Concomitant]
     Route: 048
     Dates: start: 20121218, end: 20121221
  23. ULTRALEVURE [Concomitant]
     Route: 048
     Dates: start: 20121222
  24. DIFFU K [Concomitant]
     Indication: PROPHYLAXIS
     Route: 048
     Dates: start: 20121205
  25. RIFAMYCINE CHIBRET [Concomitant]
     Dosage: 2 DROPS
     Route: 050
     Dates: start: 20130117
  26. CRESTOR [Concomitant]
     Route: 048
     Dates: start: 20130118
  27. FLUOXETINE [Concomitant]
     Route: 048
     Dates: start: 20130118
  28. AUGMENTIN [Concomitant]
     Route: 048
     Dates: start: 20130114, end: 20130121
  29. PAROXETINE [Concomitant]
     Route: 048
     Dates: start: 20121208

REACTIONS (1)
  - Renal failure [Not Recovered/Not Resolved]
